FAERS Safety Report 10913783 (Version 1)
Quarter: 2015Q1

REPORT INFORMATION
  Report Type: Spontaneous
  Country: US (occurrence: None)
  Receive Date: 20150311
  Receipt Date: 20150311
  Transmission Date: 20150721
  Serious: Yes (Disabling, Other)
  Sender: FDA-Public Use
  Company Number: None

PATIENT
  Age: 35 Year
  Sex: Female
  Weight: 65.77 kg

DRUGS (3)
  1. MIRENA [Suspect]
     Active Substance: LEVONORGESTREL
     Indication: CONTRACEPTION
     Route: 015
  2. DAILY MULIT-VITAMIN [Concomitant]
  3. ORAL BCP [Concomitant]

REACTIONS (8)
  - Aphasia [None]
  - Pain [None]
  - Fatigue [None]
  - Feeling abnormal [None]
  - Asthenia [None]
  - Anxiety [None]
  - Alopecia [None]
  - Weight increased [None]

NARRATIVE: CASE EVENT DATE: 20110306
